FAERS Safety Report 20063628 (Version 1)
Quarter: 2021Q4

REPORT INFORMATION
  Report Type: Report from Study
  Country: AR (occurrence: AR)
  Receive Date: 20211112
  Receipt Date: 20211112
  Transmission Date: 20220304
  Serious: Yes (Other)
  Sender: FDA-Public Use
  Company Number: AR-NOVARTISPH-NVSC2021AR256576

PATIENT
  Sex: Female

DRUGS (1)
  1. EXFORGE [Suspect]
     Active Substance: AMLODIPINE BESYLATE\VALSARTAN
     Indication: Blood pressure increased
     Dosage: 1 DF, QD (STARTED IN THE YEAR 2010 MORE OR LESS)
     Route: 048
     Dates: start: 2010

REACTIONS (4)
  - Cataract [Recovering/Resolving]
  - Diabetes mellitus [Recovering/Resolving]
  - Memory impairment [Recovering/Resolving]
  - Visual impairment [Recovering/Resolving]
